FAERS Safety Report 11699586 (Version 2)
Quarter: 2015Q4

REPORT INFORMATION
  Report Type: Report from Study
  Country: US (occurrence: US)
  Receive Date: 20151105
  Receipt Date: 20151208
  Transmission Date: 20160304
  Serious: No
  Sender: FDA-Public Use
  Company Number: US-AMGEN-USASL2015115304

PATIENT
  Age: 73 Year
  Sex: Female

DRUGS (1)
  1. ENBREL [Suspect]
     Active Substance: ETANERCEPT
     Indication: RHEUMATOID ARTHRITIS
     Dosage: UNK UNK, QWK
     Route: 065

REACTIONS (6)
  - Injection site erythema [Unknown]
  - Malaise [Unknown]
  - Nasopharyngitis [Unknown]
  - Injection site vesicles [Unknown]
  - Injection site pain [Unknown]
  - Device failure [Unknown]

NARRATIVE: CASE EVENT DATE: 2015
